FAERS Safety Report 8274375-X (Version None)
Quarter: 2012Q1

REPORT INFORMATION
  Report Type: 
  Country: None (occurrence: None)
  Receive Date: 20120309
  Receipt Date: 20111115
  Transmission Date: 20120608
  Serious: Yes (Other)
  Sender: FDA-Public Use
  Company Number: PHEH2011US06253

PATIENT
  Age: 62 Year
  Sex: Male
  Weight: 170.5 kg

DRUGS (7)
  1. TEKTURNA HCT [Suspect]
     Indication: HYPERTENSION
     Dosage: 1 DF(150 MG ALISK AND 12.5 MG HCTZ), QD, ORAL
     Route: 048
     Dates: start: 20110811, end: 20110816
  2. LIVALO [Concomitant]
  3. TAMSULOSIN HCL [Concomitant]
  4. NORVASC [Concomitant]
  5. ASPIRIN [Concomitant]
  6. VIAGRA [Concomitant]
  7. FLUNASE (FLUTICASONE PROPIONATE) [Concomitant]

REACTIONS (4)
  - SKIN DISCOLOURATION [None]
  - ANGIOEDEMA [None]
  - RASH [None]
  - URTICARIA [None]
